FAERS Safety Report 21437258 (Version 1)
Quarter: 2022Q4

REPORT INFORMATION
  Report Type: Spontaneous
  Country: US (occurrence: None)
  Receive Date: 20221007
  Receipt Date: 20221007
  Transmission Date: 20230112
  Serious: Yes (Hospitalization)
  Sender: FDA-Public Use
  Company Number: None

PATIENT
  Age: 70 Year
  Sex: Male
  Weight: 96.12 kg

DRUGS (20)
  1. PEMETREXED DISODIUM [Suspect]
     Active Substance: PEMETREXED DISODIUM
     Indication: Lung neoplasm malignant
     Dosage: OTHER FREQUENCY : Q3WEEKS;?
     Route: 042
     Dates: start: 202208
  2. ZIEXTENZO [Suspect]
     Active Substance: PEGFILGRASTIM-BMEZ
     Indication: Lung neoplasm malignant
     Dosage: OTHER FREQUENCY : Q3W;?
     Route: 058
     Dates: start: 202208
  3. ALBUTEROL [Concomitant]
     Active Substance: ALBUTEROL
  4. ATORVASTATIN [Concomitant]
     Active Substance: ATORVASTATIN
  5. SENNA [Concomitant]
     Active Substance: SENNA LEAF\SENNOSIDES\SENNOSIDES A AND B
  6. VITAMIN C [Concomitant]
     Active Substance: ASCORBIC ACID
  7. DEXAMETHASONE [Concomitant]
     Active Substance: DEXAMETHASONE
  8. ENTRESTO [Concomitant]
     Active Substance: SACUBITRIL\VALSARTAN
  9. EPLERENONE [Concomitant]
     Active Substance: EPLERENONE
  10. FARXIGA [Concomitant]
     Active Substance: DAPAGLIFLOZIN PROPANEDIOL
  11. FERROUS SULFATE [Concomitant]
     Active Substance: FERROUS SULFATE
  12. FLOMAX [Concomitant]
     Active Substance: TAMSULOSIN HYDROCHLORIDE
  13. LYRICA [Concomitant]
     Active Substance: PREGABALIN
  14. METOPROLOL [Concomitant]
     Active Substance: METOPROLOL
  15. PANTPRAZOLE [Concomitant]
  16. PEPCID [Concomitant]
     Active Substance: FAMOTIDINE
  17. REMERON [Concomitant]
     Active Substance: MIRTAZAPINE
  18. SILVADENE [Concomitant]
     Active Substance: SILVER SULFADIAZINE
  19. XARELTO [Concomitant]
     Active Substance: RIVAROXABAN
  20. ZYRTEC [Concomitant]
     Active Substance: CETIRIZINE HYDROCHLORIDE

REACTIONS (1)
  - Hospitalisation [None]
